FAERS Safety Report 12099745 (Version 1)
Quarter: 2016Q1

REPORT INFORMATION
  Report Type: Report from Study
  Country: US (occurrence: US)
  Receive Date: 20160222
  Receipt Date: 20160222
  Transmission Date: 20160526
  Serious: Yes (Other)
  Sender: FDA-Public Use
  Company Number: US-GILEAD-2016-0199481

PATIENT
  Age: 64 Year
  Sex: Male

DRUGS (2)
  1. LEDIPASVIR/SOFOSBUVIR [Suspect]
     Active Substance: LEDIPASVIR\SOFOSBUVIR
     Indication: HEPATITIS C
     Dosage: 1 DF, QD
     Route: 048
     Dates: start: 20150901, end: 20160104
  2. NEXAVAR [Concomitant]
     Active Substance: SORAFENIB
     Indication: HEPATIC NEOPLASM
     Route: 065

REACTIONS (3)
  - Liver injury [Unknown]
  - Nausea [Unknown]
  - Malaise [Unknown]
